FAERS Safety Report 11528562 (Version 5)
Quarter: 2015Q4

REPORT INFORMATION
  Report Type: Report from Study
  Country: US (occurrence: US)
  Receive Date: 20150921
  Receipt Date: 20151110
  Transmission Date: 20160304
  Serious: Yes (Hospitalization, Other)
  Sender: FDA-Public Use
  Company Number: US-ROCHE-1582721

PATIENT
  Age: 71 Year
  Sex: Male
  Weight: 77.7 kg

DRUGS (47)
  1. LENALIDOMIDE [Suspect]
     Active Substance: LENALIDOMIDE
     Dosage: DOSE DE-ESCALATION DUE TO CYTOPENIA, CYCLE 4
     Route: 048
     Dates: start: 20141022
  2. LENALIDOMIDE [Suspect]
     Active Substance: LENALIDOMIDE
     Dosage: CYCLE 5
     Route: 048
     Dates: start: 20141119
  3. LENALIDOMIDE [Suspect]
     Active Substance: LENALIDOMIDE
     Dosage: CYCLE 11, DOSE DE-ESCALATION DUE TO CYTOPENIA
     Route: 048
     Dates: start: 20150506
  4. COMPAZINE [Concomitant]
     Active Substance: PROCHLORPERAZINE MALEATE
     Dosage: PRN
     Route: 065
  5. ASPIRIN. [Concomitant]
     Active Substance: ASPIRIN
     Route: 048
  6. ALBUTEROL HFA [Concomitant]
     Active Substance: ALBUTEROL SULFATE
     Dosage: 3 INHALER 2 PUFFS
     Route: 065
     Dates: start: 20150413
  7. RITUXIMAB [Suspect]
     Active Substance: RITUXIMAB
     Dosage: CYCLE 5
     Route: 042
     Dates: start: 20141119
  8. LENALIDOMIDE [Suspect]
     Active Substance: LENALIDOMIDE
     Dosage: CYCLE 8
     Route: 048
     Dates: start: 20150211
  9. DIFLUCAN [Concomitant]
     Active Substance: FLUCONAZOLE
     Route: 065
  10. RITUXIMAB [Suspect]
     Active Substance: RITUXIMAB
     Dosage: CYCLE 3
     Route: 042
     Dates: start: 20140924
  11. LENALIDOMIDE [Suspect]
     Active Substance: LENALIDOMIDE
     Dosage: LAST DOSE-1/JUN/2015
     Route: 048
     Dates: start: 20150520, end: 20150601
  12. BENDAMUSTINE [Suspect]
     Active Substance: BENDAMUSTINE
     Indication: CHRONIC LYMPHOCYTIC LEUKAEMIA
     Dosage: LAST DOSE OF BENDAMUSTINE: 29/MAY/2014
     Route: 042
  13. ZOCOR [Concomitant]
     Active Substance: SIMVASTATIN
     Route: 048
     Dates: start: 20140825
  14. LOVENOX [Concomitant]
     Active Substance: ENOXAPARIN SODIUM
  15. RITUXIMAB [Suspect]
     Active Substance: RITUXIMAB
     Route: 042
     Dates: start: 20140730
  16. RITUXIMAB [Suspect]
     Active Substance: RITUXIMAB
     Dosage: CYCLE 13
     Route: 042
     Dates: start: 20150701
  17. RITUXIMAB [Suspect]
     Active Substance: RITUXIMAB
     Dosage: INDUCTION DOSE
     Route: 042
     Dates: start: 20140108, end: 20140528
  18. LENALIDOMIDE [Suspect]
     Active Substance: LENALIDOMIDE
     Indication: CHRONIC LYMPHOCYTIC LEUKAEMIA
     Dosage: DATE OF LAST DOSE OF LENALIDOMISE: 01/JUN/2015, CYCLE 1
     Route: 048
     Dates: start: 20140730
  19. LENALIDOMIDE [Suspect]
     Active Substance: LENALIDOMIDE
     Dosage: CYCLE 3
     Route: 048
     Dates: start: 20140924
  20. LENALIDOMIDE [Suspect]
     Active Substance: LENALIDOMIDE
     Dosage: CYCLE 9
     Route: 048
     Dates: start: 20150311
  21. CLARITIN [Concomitant]
     Active Substance: LORATADINE
     Dosage: PRN
     Route: 048
  22. EFUDEX CREAM [Concomitant]
     Route: 061
     Dates: start: 20140114
  23. DIFLUCAN [Concomitant]
     Active Substance: FLUCONAZOLE
     Route: 065
  24. IBUPROFEN. [Concomitant]
     Active Substance: IBUPROFEN
     Route: 065
  25. RITUXIMAB [Suspect]
     Active Substance: RITUXIMAB
     Indication: CHRONIC LYMPHOCYTIC LEUKAEMIA
     Dosage: DATE OF LAST DOSE OF RITUXIMAB: 01/JUL/2015, CYCLE 1
     Route: 042
     Dates: start: 20140730
  26. RITUXIMAB [Suspect]
     Active Substance: RITUXIMAB
     Dosage: CYCLE 9
     Route: 042
     Dates: start: 20150311
  27. LENALIDOMIDE [Suspect]
     Active Substance: LENALIDOMIDE
     Dosage: CYCLE 2
     Route: 048
     Dates: start: 20140827
  28. LENALIDOMIDE [Suspect]
     Active Substance: LENALIDOMIDE
     Dosage: CYCLE 6
     Route: 048
     Dates: start: 20141217
  29. LENALIDOMIDE [Suspect]
     Active Substance: LENALIDOMIDE
     Dosage: CYCLE 7
     Route: 048
     Dates: start: 20150114
  30. ZOVIRAX [Concomitant]
     Active Substance: ACYCLOVIR
     Route: 048
     Dates: start: 20140205
  31. ASPIRIN. [Concomitant]
     Active Substance: ASPIRIN
     Route: 048
     Dates: start: 20140731
  32. ACYCLOVIR. [Concomitant]
     Active Substance: ACYCLOVIR
     Route: 065
     Dates: start: 20140205
  33. RITUXIMAB [Suspect]
     Active Substance: RITUXIMAB
     Dosage: CYCLE 11, DOSE DE-ESCALATION DUE TO CYTOPENIA
     Route: 042
     Dates: start: 20150506
  34. GLUCOSAMINE CHONDROITIN COMPLEX [Concomitant]
     Active Substance: CHONDROITIN SULFATE (BOVINE)\GLUCOSAMINE HYDROCHLORIDE
     Dosage: 500-250 MG/ CAP
     Route: 048
     Dates: start: 20140825
  35. MOTRIN [Concomitant]
     Active Substance: IBUPROFEN
     Dosage: PRN
     Route: 065
     Dates: start: 20140825
  36. ZOFRAN [Concomitant]
     Active Substance: ONDANSETRON HYDROCHLORIDE
     Dosage: PRN
     Route: 065
  37. TYLENOL [Concomitant]
     Active Substance: ACETAMINOPHEN
     Route: 065
  38. LIDOCAINE. [Concomitant]
     Active Substance: LIDOCAINE
  39. VIAGRA [Concomitant]
     Active Substance: SILDENAFIL CITRATE
     Route: 048
  40. RITUXIMAB [Suspect]
     Active Substance: RITUXIMAB
     Dosage: CYCLE 7
     Route: 042
     Dates: start: 20150114
  41. ADVAIR DISKUS [Concomitant]
     Active Substance: FLUTICASONE PROPIONATE\SALMETEROL XINAFOATE
     Dosage: 500-50 MCG/DOSE PRN
     Route: 065
  42. MAXIPIME [Concomitant]
     Active Substance: CEFEPIME HYDROCHLORIDE
     Route: 065
  43. VANCOCIN [Concomitant]
     Active Substance: VANCOMYCIN HYDROCHLORIDE
     Route: 065
  44. GRANIX [Concomitant]
     Active Substance: TBO-FILGRASTIM
  45. CLARITIN [Concomitant]
     Active Substance: LORATADINE
     Route: 065
  46. LENALIDOMIDE [Suspect]
     Active Substance: LENALIDOMIDE
     Dosage: CYCLE 10
     Route: 048
     Dates: start: 20150408
  47. ADVAIR DISKUS [Concomitant]
     Active Substance: FLUTICASONE PROPIONATE\SALMETEROL XINAFOATE
     Dosage: 1 PUFF
     Route: 055
     Dates: start: 20150413

REACTIONS (7)
  - Benign neoplasm [Recovered/Resolved]
  - Skin neoplasm excision [Unknown]
  - White blood cell count decreased [Recovered/Resolved]
  - Neutropenia [Recovered/Resolved]
  - Skin graft [Unknown]
  - Neutrophil count decreased [Recovered/Resolved]
  - Basal cell carcinoma [Recovered/Resolved]

NARRATIVE: CASE EVENT DATE: 20140815
